FAERS Safety Report 23518371 (Version 1)
Quarter: 2024Q1

REPORT INFORMATION
  Report Type: Spontaneous
  Country: US (occurrence: US)
  Receive Date: 20240213
  Receipt Date: 20240213
  Transmission Date: 20240410
  Serious: No
  Sender: FDA-Public Use
  Company Number: US-FreseniusKabi-FK202402234

PATIENT
  Age: 28 Year
  Sex: Male

DRUGS (4)
  1. BUPIVACAINE [Suspect]
     Active Substance: BUPIVACAINE
     Indication: Product used for unknown indication
     Dosage: DOSE: UNK MG?THERAPY DURATION: UNKNOWN?LOT WITH EXPIRY DATE UNKNOWN
     Route: 065
  2. ZICONOTIDE ACETATE [Suspect]
     Active Substance: ZICONOTIDE ACETATE
     Indication: Pain
     Dosage: PRIALT (ZICONOTIDE) INTRATHECAL INFUSION. 100 UG/ML?DOSE: UNK?THERAPY DURATION: UNKNOWN
     Route: 037
     Dates: start: 20221229
  3. ZICONOTIDE ACETATE [Suspect]
     Active Substance: ZICONOTIDE ACETATE
     Indication: Spinal pain
     Dosage: PRIALT (ZICONOTIDE) INTRATHECAL INFUSION. 100 UG/ML?THERAPY DATES AND DURATION: UNKNOWN
     Route: 037
  4. ZICONOTIDE ACETATE [Suspect]
     Active Substance: ZICONOTIDE ACETATE
     Dosage: PRIALT (ZICONOTIDE) INTRATHECAL INFUSION. 100 UG/ML?THERAPY DURATION: UNKNOWN
     Route: 037
     Dates: start: 20230210

REACTIONS (5)
  - Off label use [Unknown]
  - Post lumbar puncture syndrome [Not Recovered/Not Resolved]
  - Drug intolerance [Unknown]
  - Product use issue [Unknown]
  - Adverse drug reaction [Unknown]

NARRATIVE: CASE EVENT DATE: 20221229
